FAERS Safety Report 4468640-1 (Version None)
Quarter: 2004Q3

REPORT INFORMATION
  Report Type: 
  Country: None (occurrence: None)
  Receive Date: 20040917
  Receipt Date: 20040525
  Transmission Date: 20050211
  Serious: No
  Sender: FDA-Public Use
  Company Number: US-JNJFOC-20040506421

PATIENT
  Sex: Female

DRUGS (4)
  1. ORTHO EVRA [Suspect]
     Indication: CONTRACEPTION
     Dosage: 1 DOSE (S), 3 IN 4 WEEK, TRANSDERMAL
     Route: 062
  2. HYDROXYCUT (GENERAL NUTRIENTS) [Concomitant]
  3. CLA (GENERAL NUTRIENTS) [Concomitant]
  4. MULTIVITAMIN [Concomitant]

REACTIONS (1)
  - NAUSEA [None]
